FAERS Safety Report 4822790-6 (Version None)
Quarter: 2005Q4

REPORT INFORMATION
  Report Type: 
  Country: None (occurrence: None)
  Receive Date: 20051107
  Receipt Date: 20051107
  Transmission Date: 20060501
  Serious: Yes (Hospitalization)
  Sender: FDA-Public Use
  Company Number: None

PATIENT
  Age: 78 Year
  Sex: Male
  Weight: 59.8748 kg

DRUGS (6)
  1. IRINOTECAN HCL [Suspect]
     Indication: OESOPHAGEAL CARCINOMA
     Dosage: 210 MG IV D2 + 9
     Route: 042
     Dates: start: 20050920, end: 20051020
  2. MITOMYCIN [Suspect]
     Indication: OESOPHAGEAL CARCINOMA
     Dosage: 10 MG IV D1
     Route: 042
     Dates: start: 20050920
  3. MITOMYCIN [Suspect]
     Indication: OESOPHAGEAL CARCINOMA
     Dosage: 10 MG IV D1
     Route: 042
     Dates: start: 20051020
  4. PREVACID [Concomitant]
  5. MYLANTA [Concomitant]
  6. DEXAMETHASONE [Concomitant]

REACTIONS (4)
  - ARRHYTHMIA [None]
  - ATRIAL FLUTTER [None]
  - DIZZINESS [None]
  - DYSPHAGIA [None]
